FAERS Safety Report 4288236-4 (Version None)
Quarter: 2004Q1

REPORT INFORMATION
  Report Type: 
  Country: None (occurrence: None)
  Receive Date: 20040209
  Receipt Date: 20030910
  Transmission Date: 20041129
  Serious: No
  Sender: FDA-Public Use
  Company Number: US-GLAXOSMITHKLINE-A0425404A

PATIENT
  Sex: Female

DRUGS (1)
  1. PAXIL [Suspect]
     Indication: ANXIETY
     Route: 048
     Dates: start: 20020201

REACTIONS (7)
  - FATIGUE [None]
  - FEELING COLD [None]
  - HOT FLUSH [None]
  - HUNGER [None]
  - IRRITABILITY [None]
  - SLUGGISHNESS [None]
  - WEIGHT INCREASED [None]
